FAERS Safety Report 7230220-2 (Version None)
Quarter: 2011Q1

REPORT INFORMATION
  Report Type: 
  Country: None (occurrence: None)
  Receive Date: 20110118
  Receipt Date: 20110111
  Transmission Date: 20110831
  Serious: No
  Sender: FDA-Public Use
  Company Number: US-PFIZER INC-2011007845

PATIENT
  Sex: Female

DRUGS (1)
  1. ADVIL CONGESTION RELIEF [Suspect]
     Indication: RESPIRATORY TRACT CONGESTION
     Dosage: 1 TABLET, 2X/DAY, 8 HOURS APART
     Route: 048
     Dates: start: 20110110, end: 20110111

REACTIONS (1)
  - DRUG INEFFECTIVE [None]
